FAERS Safety Report 22160841 (Version 1)
Quarter: 2023Q1

REPORT INFORMATION
  Report Type: Report from Study
  Country: CO (occurrence: CO)
  Receive Date: 20230331
  Receipt Date: 20230331
  Transmission Date: 20230418
  Serious: Yes (Other)
  Sender: FDA-Public Use
  Company Number: CO-BAYER-2023A041952

PATIENT
  Sex: Female

DRUGS (2)
  1. EYLEA [Suspect]
     Active Substance: AFLIBERCEPT
     Indication: Diabetic retinal oedema
     Dosage: UNK SOLUTION FOR INJECTION 40 MG/ML
     Route: 047
     Dates: start: 20220919
  2. EYLEA [Suspect]
     Active Substance: AFLIBERCEPT
     Dosage: UNK SOLUTION FOR INJECTION 40 MG/ML
     Route: 047
     Dates: start: 20230322, end: 20230322

REACTIONS (2)
  - Incorrect route of product administration [Recovering/Resolving]
  - Eye haemorrhage [Recovering/Resolving]

NARRATIVE: CASE EVENT DATE: 20230322
